FAERS Safety Report 8819731 (Version 1)
Quarter: 2012Q4

REPORT INFORMATION
  Report Type: 
  Country: US (occurrence: US)
  Receive Date: 20121001
  Receipt Date: 20121001
  Transmission Date: 20130627
  Serious: Yes (Death)
  Sender: FDA-Public Use
  Company Number: US-ROCHE-1129503

PATIENT
  Sex: Female

DRUGS (12)
  1. HERCEPTIN [Suspect]
     Indication: BREAST CANCER FEMALE
     Dosage: 2501 cc NS
     Route: 042
     Dates: start: 19991019
  2. HERCEPTIN [Suspect]
     Dosage: 250 cc NS
     Route: 042
     Dates: start: 19991109
  3. HERCEPTIN [Suspect]
     Dosage: 250 CC NS
     Route: 042
     Dates: start: 19991214
  4. TYLENOL [Concomitant]
     Route: 048
     Dates: start: 19991019
  5. TYLENOL [Concomitant]
     Route: 065
     Dates: start: 19991109
  6. BENADRYL [Concomitant]
     Dosage: 100 cc NS
     Route: 042
     Dates: start: 19991019
  7. BENADRYL [Concomitant]
     Dosage: 100 cc NS
     Route: 042
     Dates: start: 19991109
  8. BENADRYL [Concomitant]
     Dosage: 100 CC NS
     Route: 042
     Dates: start: 19991214
  9. HEPARIN [Concomitant]
     Dosage: 500 U + 10  CC NS
     Route: 040
     Dates: start: 19991019
  10. HEPARIN [Concomitant]
     Dosage: 500 U + 10  CC NS
     Route: 040
     Dates: start: 19991109
  11. HEPARIN [Concomitant]
     Dosage: 500 U + 10  CC NS
     Route: 040
     Dates: start: 19991214
  12. AREDIA [Concomitant]
     Dosage: 250 CC NS
     Route: 042
     Dates: start: 19991214

REACTIONS (6)
  - Death [Fatal]
  - Sinus headache [Unknown]
  - Fatigue [Unknown]
  - Back pain [Unknown]
  - Pyrexia [Unknown]
  - Dyspnoea [Unknown]
